FAERS Safety Report 16142176 (Version 2)
Quarter: 2020Q3

REPORT INFORMATION
  Report Type: Spontaneous
  Country: US (occurrence: US)
  Receive Date: 20190401
  Receipt Date: 20200812
  Transmission Date: 20201102
  Serious: No
  Sender: FDA-Public Use
  Company Number: US-SA-2019SA084580

PATIENT

DRUGS (1)
  1. DUPIXENT [Suspect]
     Active Substance: DUPILUMAB
     Dosage: 300 MG
     Route: 058
     Dates: start: 201810

REACTIONS (3)
  - Lip swelling [Unknown]
  - Product dose omission issue [Unknown]
  - Lip erythema [Unknown]

NARRATIVE: CASE EVENT DATE: 20200731
